FAERS Safety Report 19361108 (Version 2)
Quarter: 2021Q3

REPORT INFORMATION
  Report Type: Spontaneous
  Country: US (occurrence: US)
  Receive Date: 20210601
  Receipt Date: 20210720
  Transmission Date: 20211014
  Serious: Yes (Hospitalization, Other)
  Sender: FDA-Public Use
  Company Number: US-SA-2021SA174816

PATIENT
  Age: 45 Year
  Sex: Female

DRUGS (2)
  1. FABRAZYME [Suspect]
     Active Substance: AGALSIDASE BETA
     Dosage: 140 MG, QOW
     Route: 041
     Dates: start: 2021
  2. FABRAZYME [Suspect]
     Active Substance: AGALSIDASE BETA
     Indication: FABRY^S DISEASE
     Dosage: 160 MG
     Route: 041

REACTIONS (13)
  - Cardiac disorder [Unknown]
  - Hypoaesthesia [Unknown]
  - Proteinuria [Unknown]
  - Condition aggravated [Unknown]
  - Paraesthesia [Unknown]
  - Burning sensation [Unknown]
  - Pain [Unknown]
  - Myocardial necrosis marker increased [Unknown]
  - Nephrolithiasis [Unknown]
  - Hypertension [Unknown]
  - Fatigue [Unknown]
  - Product dose omission issue [Unknown]
  - Temperature intolerance [Unknown]

NARRATIVE: CASE EVENT DATE: 20210628
